FAERS Safety Report 14536915 (Version 1)
Quarter: 2018Q1

REPORT INFORMATION
  Report Type: Report from Study
  Country: US (occurrence: US)
  Receive Date: 20180215
  Receipt Date: 20180215
  Transmission Date: 20180509
  Serious: Yes (Hospitalization)
  Sender: FDA-Public Use
  Company Number: US-TEVA-2018-US-858706

PATIENT
  Age: 39 Year
  Sex: Male

DRUGS (3)
  1. ASPIRIN. [Suspect]
     Active Substance: ASPIRIN
     Indication: ANTICOAGULANT THERAPY
     Route: 065
  2. WARFARIN [Suspect]
     Active Substance: WARFARIN
     Indication: ANTICOAGULANT THERAPY
     Route: 065
  3. DIPYRIDAMOLE. [Suspect]
     Active Substance: DIPYRIDAMOLE
     Indication: ANTICOAGULANT THERAPY
     Route: 065

REACTIONS (5)
  - Device related thrombosis [Unknown]
  - Cerebellar haemorrhage [Recovered/Resolved]
  - Medical device site haemorrhage [Recovered/Resolved]
  - Intraventricular haemorrhage [Recovered/Resolved]
  - Hydrocephalus [Recovered/Resolved]
